FAERS Safety Report 7366623-5 (Version None)
Quarter: 2011Q1

REPORT INFORMATION
  Report Type: 
  Country: None (occurrence: None)
  Receive Date: 20110309
  Receipt Date: 20110222
  Transmission Date: 20110831
  Serious: Yes (Other)
  Sender: FDA-Public Use
  Company Number: JPI-P-014012

PATIENT
  Age: 45 Year
  Sex: Male

DRUGS (4)
  1. DEXITRIN [Concomitant]
  2. XYREM [Suspect]
     Indication: CATAPLEXY
     Dosage: 4.5 GM (2.25 GM, 2 IN 1 D),ORAL
     Route: 048
     Dates: start: 20110105, end: 20110121
  3. LITHIUM [Concomitant]
  4. ZIPROLEX [Concomitant]

REACTIONS (2)
  - ABNORMAL DREAMS [None]
  - MENTAL DISORDER [None]
